FAERS Safety Report 20891381 (Version 2)
Quarter: 2022Q2

REPORT INFORMATION
  Report Type: Spontaneous
  Country: US (occurrence: US)
  Receive Date: 20220530
  Receipt Date: 20220613
  Transmission Date: 20220721
  Serious: Yes (Hospitalization)
  Sender: FDA-Public Use
  Company Number: US-TEVA-2022-US-2041268

PATIENT
  Age: 58 Year
  Sex: Female

DRUGS (11)
  1. FLUOROURACIL [Suspect]
     Active Substance: FLUOROURACIL
     Indication: Small intestine carcinoma metastatic
     Dosage: 1600 MG/M2 DAILY; CONTINUOUS INFUSION FOR 46 HOURS
     Route: 050
     Dates: start: 2021
  2. FLUOROURACIL [Suspect]
     Active Substance: FLUOROURACIL
     Indication: Adenocarcinoma metastatic
  3. LEUCOVORIN [Suspect]
     Active Substance: LEUCOVORIN
     Indication: Small intestine carcinoma metastatic
     Route: 065
     Dates: start: 2021
  4. LEUCOVORIN [Suspect]
     Active Substance: LEUCOVORIN
     Indication: Adenocarcinoma metastatic
  5. IRINOTECAN [Suspect]
     Active Substance: IRINOTECAN
     Indication: Small intestine carcinoma metastatic
     Route: 065
     Dates: start: 2021
  6. IRINOTECAN [Suspect]
     Active Substance: IRINOTECAN
     Indication: Adenocarcinoma metastatic
  7. OXALIPLATIN [Suspect]
     Active Substance: OXALIPLATIN
     Indication: Small intestine carcinoma metastatic
     Route: 065
     Dates: start: 2021
  8. OXALIPLATIN [Suspect]
     Active Substance: OXALIPLATIN
     Indication: Adenocarcinoma metastatic
  9. BEVACIZUMAB [Suspect]
     Active Substance: BEVACIZUMAB
     Indication: Small intestine carcinoma metastatic
     Route: 065
     Dates: start: 2021
  10. BEVACIZUMAB [Suspect]
     Active Substance: BEVACIZUMAB
     Indication: Adenocarcinoma metastatic
  11. PEGFILGRASTIM [Suspect]
     Active Substance: PEGFILGRASTIM
     Indication: Prophylaxis
     Route: 065
     Dates: start: 2021

REACTIONS (4)
  - Neutropenia [Unknown]
  - Arteritis [Recovered/Resolved]
  - Carotid artery disease [Recovered/Resolved]
  - Drug ineffective [Unknown]

NARRATIVE: CASE EVENT DATE: 20210601
